FAERS Safety Report 14427672 (Version 1)
Quarter: 2018Q1

REPORT INFORMATION
  Report Type: Spontaneous
  Country: US (occurrence: US)
  Receive Date: 20180123
  Receipt Date: 20180123
  Transmission Date: 20180509
  Serious: No
  Sender: FDA-Public Use
  Company Number: US-AMGEN-USASP2016081801

PATIENT
  Sex: Female

DRUGS (2)
  1. REPATHA [Suspect]
     Active Substance: EVOLOCUMAB
     Indication: TYPE IIA HYPERLIPIDAEMIA
     Dosage: UNK
     Route: 065
  2. JUXTAPID [Concomitant]
     Active Substance: LOMITAPIDE MESYLATE

REACTIONS (3)
  - Headache [Recovered/Resolved]
  - Throat irritation [Unknown]
  - Injection site pain [Recovered/Resolved]
